FAERS Safety Report 8697898 (Version 2)
Quarter: 2013Q4

REPORT INFORMATION
  Report Type: Spontaneous
  Country: US (occurrence: US)
  Receive Date: 20120801
  Receipt Date: 20131105
  Transmission Date: 20140711
  Serious: Yes (Life-Threatening, Hospitalization)
  Sender: FDA-Public Use
  Company Number: US-MSD-1207USA011135

PATIENT
  Sex: 0

DRUGS (4)
  1. ZOCOR [Suspect]
  2. MARCUMAR [Interacting]
     Dosage: UNK, PRN
     Route: 048
  3. VERAPAMIL [Interacting]
     Dosage: 120 MG, BID
     Route: 048
  4. VERAPAMIL [Interacting]
     Dosage: 120 MG, TID
     Route: 048

REACTIONS (3)
  - Rhabdomyolysis [Unknown]
  - Transaminases increased [Unknown]
  - Skin disorder [Unknown]
